FAERS Safety Report 9598736 (Version 1)
Quarter: 2013Q4

REPORT INFORMATION
  Report Type: Spontaneous
  Country: US (occurrence: US)
  Receive Date: 20131004
  Receipt Date: 20131004
  Transmission Date: 20140711
  Serious: No
  Sender: FDA-Public Use
  Company Number: US-AMGEN-USASP2013025184

PATIENT
  Age: 64 Year
  Sex: Male
  Weight: 80 kg

DRUGS (13)
  1. ENBREL [Suspect]
     Indication: PRODUCT USED FOR UNKNOWN INDICATION
     Dosage: 25 MG, 2 TIMES/WK
     Route: 058
  2. PAROXETINE [Concomitant]
     Dosage: 10 MG, UNK
  3. SIMVASTATIN [Concomitant]
     Dosage: 40 MG, UNK
  4. ASPIRIN [Concomitant]
     Dosage: 81 MG, UNK
  5. ALEVE [Concomitant]
     Dosage: 220 MG, UNK
  6. VITAMIN D                          /00107901/ [Concomitant]
     Dosage: 1000 UNIT, UNK
  7. CALCIUM + VITAMIN D                /01483701/ [Concomitant]
     Dosage: 500 UNK, UNK
  8. VITAMIN C                          /00008001/ [Concomitant]
     Dosage: 500 MG, UNK
  9. VITAMIN E                          /00110501/ [Concomitant]
     Dosage: 200 UNIT, UNK
  10. COD LIVER [Concomitant]
     Dosage: UNK
  11. LUTEIN                             /01638501/ [Concomitant]
     Dosage: 6 MG, UNK
  12. FIBER LAX [Concomitant]
     Dosage: UNK
  13. LISINOPRIL [Concomitant]
     Dosage: 20 MG, UNK

REACTIONS (3)
  - Pain [Unknown]
  - Sinusitis [Unknown]
  - Bronchitis [Unknown]
